FAERS Safety Report 8879466 (Version 1)
Quarter: 2012Q4

REPORT INFORMATION
  Report Type: 
  Country: JP (occurrence: JP)
  Receive Date: 20121101
  Receipt Date: 20121101
  Transmission Date: 20130627
  Serious: Yes (Hospitalization, Other)
  Sender: FDA-Public Use
  Company Number: JP-009507513-2011SP045069

PATIENT
  Age: 58 Year
  Sex: Male
  Weight: 70 kg

DRUGS (2)
  1. PEG-INTRON [Suspect]
     Indication: HEPATITIS C
     Dosage: 100 microgram, QW
     Route: 058
     Dates: start: 20100705, end: 20110905
  2. REBETOL [Suspect]
     Indication: HEPATITIS C
     Dosage: 200mg in the morning and 400mg in the evening, QD
     Route: 048
     Dates: start: 20100705, end: 20110912

REACTIONS (2)
  - Skin ulcer [Recovered/Resolved]
  - Necrotising fasciitis [Recovered/Resolved]
